FAERS Safety Report 12939182 (Version 1)
Quarter: 2016Q4

REPORT INFORMATION
  Report Type: Spontaneous
  Country: US (occurrence: US)
  Receive Date: 20161114
  Receipt Date: 20161114
  Transmission Date: 20170207
  Serious: No
  Sender: FDA-Public Use
  Company Number: US-B.I. PHARMACEUTICALS,INC./RIDGEFIELD-2016-BI-073695

PATIENT
  Age: 65 Year
  Sex: Female

DRUGS (1)
  1. GILOTRIF [Suspect]
     Active Substance: AFATINIB
     Indication: LUNG CANCER METASTATIC
     Route: 048
     Dates: start: 20160228

REACTIONS (8)
  - Rash erythematous [Unknown]
  - Acne [Recovered/Resolved]
  - Epistaxis [Unknown]
  - Rhinorrhoea [Unknown]
  - Skin exfoliation [Unknown]
  - Onychoclasis [Unknown]
  - Hypotrichosis [Unknown]
  - Pruritus [Unknown]

NARRATIVE: CASE EVENT DATE: 201603
